FAERS Safety Report 25548414 (Version 1)
Quarter: 2025Q3

REPORT INFORMATION
  Report Type: Spontaneous
  Country: CH (occurrence: CH)
  Receive Date: 20250714
  Receipt Date: 20250714
  Transmission Date: 20251021
  Serious: Yes (Life-Threatening, Hospitalization, Other)
  Sender: MYLAN
  Company Number: None

PATIENT
  Sex: Male
  Weight: 2.78 kg

DRUGS (7)
  1. VENLAFAXINE [Suspect]
     Active Substance: VENLAFAXINE HYDROCHLORIDE
     Indication: Borderline personality disorder
     Dosage: 225 MILLIGRAM, QD
  2. VENLAFAXINE [Suspect]
     Active Substance: VENLAFAXINE HYDROCHLORIDE
     Indication: Depression
  3. OLANZAPINE [Suspect]
     Active Substance: OLANZAPINE
     Indication: Depression
     Dosage: 5 MILLIGRAM, QD
  4. OLANZAPINE [Suspect]
     Active Substance: OLANZAPINE
     Indication: Borderline personality disorder
  5. LORAZEPAM [Suspect]
     Active Substance: LORAZEPAM
     Indication: Borderline personality disorder
  6. LORAZEPAM [Suspect]
     Active Substance: LORAZEPAM
     Indication: Depression
  7. LEVEMIR [Concomitant]
     Active Substance: INSULIN DETEMIR
     Indication: Gestational diabetes
     Dosage: 6 INTERNATIONAL UNIT, PM (6 UNITS IN THE EVENING)

REACTIONS (3)
  - Neonatal respiratory distress syndrome [Recovered/Resolved]
  - Neonatal behavioural syndrome [Recovered/Resolved]
  - Foetal exposure during pregnancy [Recovered/Resolved]

NARRATIVE: CASE EVENT DATE: 20250111
